FAERS Safety Report 15928552 (Version 1)
Quarter: 2019Q1

REPORT INFORMATION
  Report Type: Report from Study
  Country: FR (occurrence: FR)
  Receive Date: 20190206
  Receipt Date: 20190206
  Transmission Date: 20190417
  Serious: Yes (Other)
  Sender: FDA-Public Use
  Company Number: FR-PFIZER INC-2019037300

PATIENT
  Age: 72 Year
  Sex: Female
  Weight: 64 kg

DRUGS (6)
  1. AMLODIPINE [Concomitant]
     Active Substance: AMLODIPINE BESYLATE
     Indication: HYPERTENSION
     Dosage: 5 MG, UNK
     Route: 048
     Dates: start: 20190117, end: 20190124
  2. MYLOTARG [Suspect]
     Active Substance: GEMTUZUMAB OZOGAMICIN
     Indication: ACUTE MYELOID LEUKAEMIA
     Dosage: 3 MG/M2, CYCLIC ON DAY 1 AND DAY 4 (INDUCTION)
     Dates: start: 20190111
  3. ZARZIO [Concomitant]
     Active Substance: FILGRASTIM
     Dosage: 30MU/0.5ML
     Route: 042
     Dates: start: 20190119
  4. CYTARABINE. [Suspect]
     Active Substance: CYTARABINE
     Indication: ACUTE MYELOID LEUKAEMIA
     Dosage: 260 MG/M2, CYCLIC FROM  DAY 1 TO DAY 7 (INDUCTION)
     Dates: start: 20190111
  5. LEVOTHYROXINE. [Concomitant]
     Active Substance: LEVOTHYROXINE
     Indication: HYPOTHYROIDISM
     Dosage: 75 UG, UNK
     Route: 048
     Dates: start: 20190108
  6. RACECADOTRIL [Concomitant]
     Active Substance: RACECADOTRIL
     Indication: DIARRHOEA
     Dosage: 1 MG, UNK
     Route: 048
     Dates: start: 20190118

REACTIONS (1)
  - Gastrointestinal haemorrhage [Unknown]

NARRATIVE: CASE EVENT DATE: 20190124
